FAERS Safety Report 8809565 (Version 2)
Quarter: 2015Q2

REPORT INFORMATION
  Report Type: Report from Study
  Country: US (occurrence: US)
  Receive Date: 20120926
  Receipt Date: 20150622
  Transmission Date: 20150821
  Serious: Yes (Death)
  Sender: FDA-Public Use
  Company Number: US-ROCHE-1137211

PATIENT
  Age: 77 Year
  Sex: Male
  Weight: 74 kg

DRUGS (8)
  1. AVASTIN [Suspect]
     Active Substance: BEVACIZUMAB
     Indication: METASTASES TO PERITONEUM
  2. AVASTIN [Suspect]
     Active Substance: BEVACIZUMAB
     Indication: METASTASES TO LUNG
  3. AVASTIN [Suspect]
     Active Substance: BEVACIZUMAB
     Indication: GASTRIC CANCER
     Dosage: INFUSE OVER 90 MINS IN 100 ML NS
     Route: 042
     Dates: start: 20080221
  4. HERCEPTIN [Suspect]
     Active Substance: TRASTUZUMAB
     Indication: LUNG NEOPLASM MALIGNANT
     Dosage: INFUSE OVER 30 MINS IN 250 ML NS?THERAPY RECEIVED DATES: 13/MAR/2005
     Route: 042
  5. AVASTIN [Suspect]
     Active Substance: BEVACIZUMAB
     Indication: RETROPERITONEAL CANCER
  6. HERCEPTIN [Suspect]
     Active Substance: TRASTUZUMAB
     Indication: MALIGNANT PERITONEAL NEOPLASM
  7. HERCEPTIN [Suspect]
     Active Substance: TRASTUZUMAB
     Indication: RETROPERITONEAL CANCER
  8. HERCEPTIN [Suspect]
     Active Substance: TRASTUZUMAB
     Indication: GASTRIC CANCER
     Dosage: INFUSE OVER 90 MINS IN 250 ML NS?THERAPY RECEIVED DATES: 21/FEB/2008, 13/MAR/2008
     Route: 042

REACTIONS (4)
  - Off label use [Unknown]
  - Death [Fatal]
  - Asthenia [Unknown]
  - Back pain [Unknown]

NARRATIVE: CASE EVENT DATE: 200804
